FAERS Safety Report 6963861-8 (Version None)
Quarter: 2010Q3

REPORT INFORMATION
  Report Type: 
  Country: None (occurrence: None)
  Receive Date: 20100830
  Receipt Date: 20100825
  Transmission Date: 20110219
  Serious: Yes (Death, Life-Threatening)
  Sender: FDA-Public Use
  Company Number: 2010SP037879

PATIENT
  Age: 69 Year
  Sex: Female

DRUGS (8)
  1. MIRTAZAPINE [Suspect]
     Indication: DEPRESSION
     Dosage: 15 MG; PO; 45 MG, QD, PO
     Route: 048
     Dates: start: 20091207, end: 20091222
  2. MIRTAZAPINE [Suspect]
     Indication: INSOMNIA
     Dosage: 15 MG; PO; 45 MG, QD, PO
     Route: 048
     Dates: start: 20091207, end: 20091222
  3. MIRTAZAPINE [Suspect]
     Indication: DEPRESSION
     Dosage: 15 MG; PO; 45 MG, QD, PO
     Route: 048
     Dates: start: 20091223
  4. MIRTAZAPINE [Suspect]
     Indication: INSOMNIA
     Dosage: 15 MG; PO; 45 MG, QD, PO
     Route: 048
     Dates: start: 20091223
  5. FLUNITRAZEPAM [Concomitant]
  6. CHINESE HERBAL MEDICINE [Concomitant]
  7. CLONAZEPAM [Concomitant]
  8. FLUNITRAZEPAM [Concomitant]

REACTIONS (9)
  - ASPHYXIA [None]
  - COMPLETED SUICIDE [None]
  - CONDITION AGGRAVATED [None]
  - GENERAL PHYSICAL HEALTH DETERIORATION [None]
  - MOVEMENT DISORDER [None]
  - OVERDOSE [None]
  - SPEECH DISORDER [None]
  - STUPOR [None]
  - UNRESPONSIVE TO STIMULI [None]
